FAERS Safety Report 13162704 (Version 1)
Quarter: 2017Q1

REPORT INFORMATION
  Report Type: Spontaneous
  Country: US (occurrence: US)
  Receive Date: 20170125
  Receipt Date: 20170125
  Transmission Date: 20170428
  Serious: Yes (Hospitalization)
  Sender: FDA-Public Use
  Company Number: None

PATIENT
  Age: 55 Year
  Sex: Female
  Weight: 73.9 kg

DRUGS (1)
  1. LORAZEPAM. [Suspect]
     Active Substance: LORAZEPAM
     Dosage: ?          OTHER FREQUENCY:ONCE;?
     Route: 030

REACTIONS (3)
  - Swollen tongue [None]
  - Stridor [None]
  - Dyspnoea [None]

NARRATIVE: CASE EVENT DATE: 20161215
